FAERS Safety Report 13473806 (Version 2)
Quarter: 2018Q3

REPORT INFORMATION
  Report Type: Spontaneous
  Country: GB (occurrence: GB)
  Receive Date: 20170424
  Receipt Date: 20180713
  Transmission Date: 20181010
  Serious: Yes (Hospitalization, Other)
  Sender: FDA-Public Use
  Company Number: PHFR2017GB002724

PATIENT
  Age: 29 Year
  Sex: Male
  Weight: 75 kg

DRUGS (1)
  1. RIAMET [Suspect]
     Active Substance: ARTEMETHER\LUMEFANTRINE
     Indication: PLASMODIUM FALCIPARUM INFECTION
     Dosage: 4 DF, 6QD (4 TABLETS AT TIMES 0, 8, 24, 36, 48, 60)
     Route: 048
     Dates: start: 20170330, end: 20170331

REACTIONS (3)
  - Supraventricular tachycardia [Recovered/Resolved]
  - Hypotension [Recovered/Resolved]
  - Plasmodium falciparum infection [Recovered/Resolved]

NARRATIVE: CASE EVENT DATE: 20170331
